FAERS Safety Report 9305737 (Version 2)
Quarter: 2014Q1

REPORT INFORMATION
  Report Type: Report from Study
  Country: US (occurrence: US)
  Receive Date: 20130523
  Receipt Date: 20140326
  Transmission Date: 20141002
  Serious: Yes (Hospitalization, Other)
  Sender: FDA-Public Use
  Company Number: US-ACTELION-A-NJ2013-83444

PATIENT
  Age: 49 Year
  Sex: Male

DRUGS (1)
  1. TRACLEER [Suspect]
     Indication: PULMONARY ARTERIAL HYPERTENSION
     Dosage: UNK
     Route: 048
     Dates: start: 200601

REACTIONS (7)
  - Surgery [Unknown]
  - Neuropathy peripheral [Unknown]
  - Pain [Unknown]
  - Pancytopenia [Unknown]
  - Anaemia [Unknown]
  - Transfusion [Unknown]
  - Medical device removal [Unknown]
